FAERS Safety Report 17107356 (Version 1)
Quarter: 2019Q4

REPORT INFORMATION
  Report Type: Spontaneous
  Country: US (occurrence: US)
  Receive Date: 20191203
  Receipt Date: 20191203
  Transmission Date: 20200122
  Serious: No
  Sender: FDA-Public Use
  Company Number: US-009507513-1911USA010697

PATIENT
  Sex: Female

DRUGS (1)
  1. TEMODAR [Suspect]
     Active Substance: TEMOZOLOMIDE
     Indication: GLIOBLASTOMA
     Dosage: 1 CAPSULE FOR 5 DAYS; FREQUENCY: EVERY 28 DAYS
     Route: 048
     Dates: start: 2015

REACTIONS (3)
  - Circumstance or information capable of leading to medication error [Unknown]
  - Incorrect product administration duration [Unknown]
  - No adverse event [Unknown]
